FAERS Safety Report 16559868 (Version 2)
Quarter: 2020Q3

REPORT INFORMATION
  Report Type: Spontaneous
  Country: US (occurrence: US)
  Receive Date: 20190711
  Receipt Date: 20200722
  Transmission Date: 20201102
  Serious: Yes (Hospitalization)
  Sender: FDA-Public Use
  Company Number: US-ORPHAN EUROPE-2070674

PATIENT
  Age: 4 Year
  Sex: Male

DRUGS (1)
  1. CARBAGLU [Suspect]
     Active Substance: CARGLUMIC ACID
     Indication: UREA CYCLE DISORDER

REACTIONS (2)
  - Bacterial infection [Unknown]
  - Ammonia increased [Unknown]
